FAERS Safety Report 13833444 (Version 1)
Quarter: 2017Q3

REPORT INFORMATION
  Report Type: Spontaneous
  Country: US (occurrence: US)
  Receive Date: 20170803
  Receipt Date: 20170803
  Transmission Date: 20171127
  Serious: No
  Sender: FDA-Public Use
  Company Number: None

PATIENT
  Age: 20 Year
  Sex: Female

DRUGS (1)
  1. SIMPONI [Suspect]
     Active Substance: GOLIMUMAB
     Indication: PSORIATIC ARTHROPATHY
     Dosage: 50MG EVERY 28 DAYS SUBCUTANEOUS INJECTION
     Route: 058
     Dates: start: 20170403

REACTIONS (1)
  - Erythema [None]

NARRATIVE: CASE EVENT DATE: 20170403
